FAERS Safety Report 21945750 (Version 1)
Quarter: 2023Q1

REPORT INFORMATION
  Report Type: Spontaneous
  Country: US (occurrence: None)
  Receive Date: 20230202
  Receipt Date: 20230202
  Transmission Date: 20230418
  Serious: Yes (Hospitalization)
  Sender: FDA-Public Use
  Company Number: None

PATIENT
  Sex: Male
  Weight: 92.9 kg

DRUGS (3)
  1. ACALABRUTINIB [Suspect]
     Active Substance: ACALABRUTINIB
     Dates: start: 20221226
  2. CYTARABINE [Suspect]
     Active Substance: CYTARABINE
     Dates: end: 20221222
  3. RITUXIMAB [Suspect]
     Active Substance: RITUXIMAB
     Dates: end: 20221220

REACTIONS (3)
  - Productive cough [None]
  - Influenza [None]
  - Chills [None]

NARRATIVE: CASE EVENT DATE: 20221229
